FAERS Safety Report 19399584 (Version 2)
Quarter: 2023Q2

REPORT INFORMATION
  Report Type: Spontaneous
  Country: DK (occurrence: DK)
  Receive Date: 20210610
  Receipt Date: 20230620
  Transmission Date: 20230721
  Serious: Yes (Hospitalization)
  Sender: FDA-Public Use
  Company Number: DK-TEVA-2021-DK-1919824

PATIENT
  Age: 92 Year
  Sex: Female

DRUGS (3)
  1. BUPRENORPHINE [Suspect]
     Active Substance: BUPRENORPHINE
     Indication: Pain
     Dosage: 360 MICROGRAM DAILY;
     Route: 062
  2. BUPRENORPHINE [Suspect]
     Active Substance: BUPRENORPHINE
     Indication: Pain
     Dosage: SHE ALREADY HAD 2 BUPRENORPHINE PATCHES ON HER BODY AT THE TIME OF HOSPITALISATION
     Route: 062
  3. MORPHINE [Suspect]
     Active Substance: MORPHINE
     Indication: Pain
     Route: 042

REACTIONS (5)
  - Fatigue [Unknown]
  - Hypotension [Unknown]
  - Confusional state [Unknown]
  - Product monitoring error [Unknown]
  - Overdose [Unknown]
